FAERS Safety Report 21773930 (Version 23)
Quarter: 2024Q3

REPORT INFORMATION
  Report Type: Spontaneous
  Country: IN (occurrence: IN)
  Receive Date: 20221223
  Receipt Date: 20240724
  Transmission Date: 20241017
  Serious: Yes (Hospitalization, Other)
  Sender: PFIZER
  Company Number: IN-PFIZER INC-PV202200127042

PATIENT
  Age: 40 Year
  Sex: Female

DRUGS (16)
  1. PALBOCICLIB [Suspect]
     Active Substance: PALBOCICLIB
     Indication: Breast cancer
     Dosage: DAY 1-21/28 DAYS
     Route: 048
     Dates: start: 20220418
  2. PALBOCICLIB [Suspect]
     Active Substance: PALBOCICLIB
     Indication: Metastases to bone
     Dosage: 125 MG, 1X/DAY
     Route: 048
     Dates: start: 20230613, end: 20230623
  3. PALBOCICLIB [Suspect]
     Active Substance: PALBOCICLIB
     Dosage: 125 MG, 1X/DAY
     Route: 048
  4. LEUPROLIDE ACETATE [Concomitant]
     Active Substance: ISOPROPYL ALCOHOL\LEUPROLIDE ACETATE
     Dosage: UNK
     Dates: start: 202204, end: 202209
  5. ZOLEDRONIC ACID [Concomitant]
     Active Substance: ZOLEDRONIC ACID
     Dosage: UNK
     Dates: start: 202204
  6. LETROZOLE [Concomitant]
     Active Substance: LETROZOLE
     Dosage: UNK
     Dates: start: 202204
  7. LETROZOLE [Concomitant]
     Active Substance: LETROZOLE
     Dosage: 2.5 MG, 1X/DAY
  8. CALCIUM CARBONATE\CHOLECALCIFEROL [Concomitant]
     Active Substance: CALCIUM CARBONATE\CHOLECALCIFEROL
     Dosage: UNK, 2X/DAY (1-0-1)
  9. DEXORANGE [Concomitant]
     Dosage: 1 DF, 3X/DAY (1-1-1)
  10. MEGASTY [Concomitant]
     Dosage: 80 MG, 2X/DAY (160 MG, 1/2 TAB-0-1/2 TAB)
  11. MEGASTY [Concomitant]
     Dosage: 40 MG, DAILY
  12. MEGASTY [Concomitant]
     Dosage: 80 MG, DAILY (1/2-0-0 )
  13. NEUPEG [Concomitant]
     Dosage: 6 MG
     Route: 058
     Dates: start: 20231211
  14. NEUPEG [Concomitant]
     Dosage: 6 MG, STAT
     Route: 058
     Dates: start: 20240107
  15. NEUPEG [Concomitant]
     Dosage: 6 MG, STAT
     Route: 058
     Dates: start: 20240314
  16. ULTRACET [Concomitant]
     Active Substance: ACETAMINOPHEN\TRAMADOL HYDROCHLORIDE
     Dosage: 1-1-1 X SOS

REACTIONS (26)
  - Salpingo-oophorectomy bilateral [Unknown]
  - Cervical vertebral fracture [Unknown]
  - Thoracic vertebral fracture [Unknown]
  - Kyphosis [Unknown]
  - Body mass index increased [Unknown]
  - Respiratory rate increased [Unknown]
  - Haemoglobin decreased [Unknown]
  - Neoplasm progression [Unknown]
  - Creatinine renal clearance increased [Unknown]
  - White blood cell count decreased [Unknown]
  - Neutrophil percentage decreased [Unknown]
  - Lymphocyte percentage decreased [Unknown]
  - Eosinophil percentage decreased [Unknown]
  - Heart rate increased [Unknown]
  - Dysuria [Unknown]
  - Platelet count decreased [Unknown]
  - Basophil count increased [Unknown]
  - Blood potassium decreased [Unknown]
  - Neutrophil count decreased [Unknown]
  - Tumour marker increased [Unknown]
  - Increased appetite [Unknown]
  - Off label use [Unknown]
  - Off label use [Unknown]
  - Cough [Unknown]
  - Productive cough [Unknown]
  - Blood pressure increased [Unknown]

NARRATIVE: CASE EVENT DATE: 20220905
